FAERS Safety Report 19171717 (Version 1)
Quarter: 2021Q2

REPORT INFORMATION
  Report Type: Report from Study
  Country: GR (occurrence: GR)
  Receive Date: 20210423
  Receipt Date: 20210423
  Transmission Date: 20210717
  Serious: Yes (Other)
  Sender: FDA-Public Use
  Company Number: GR-TEVA-2021-GR-1904808

PATIENT
  Age: 47 Year
  Sex: Female
  Weight: 90 kg

DRUGS (35)
  1. BENDAMUSTINE HYDROCHLORIDE. [Suspect]
     Active Substance: BENDAMUSTINE HYDROCHLORIDE
     Dosage: (3RD CYCLE)
     Route: 042
     Dates: start: 20200318
  2. BENDAMUSTINE HYDROCHLORIDE. [Suspect]
     Active Substance: BENDAMUSTINE HYDROCHLORIDE
     Dosage: (6TH CYCLE)
     Route: 042
     Dates: start: 20200624
  3. POLATUZUMAB VEDOTIN. [Suspect]
     Active Substance: POLATUZUMAB VEDOTIN
     Dosage: (4TH CYCLE)
     Route: 042
     Dates: start: 20200429
  4. IBRUTINIB [Suspect]
     Active Substance: IBRUTINIB
     Dosage: (2ND CYCLE)
     Route: 042
     Dates: start: 20200219
  5. IBRUTINIB [Suspect]
     Active Substance: IBRUTINIB
     Dosage: (4TH CYCLE)
     Route: 042
     Dates: start: 20200429
  6. VALTREX [Concomitant]
     Active Substance: VALACYCLOVIR HYDROCHLORIDE
     Indication: PRODUCT USED FOR UNKNOWN INDICATION
     Dosage: 500 MG, UNKNOWN FREQ.(1X2)
     Route: 065
  7. BENDAMUSTINE HYDROCHLORIDE. [Suspect]
     Active Substance: BENDAMUSTINE HYDROCHLORIDE
     Dosage: (4TH CYCLE)
     Route: 042
     Dates: start: 20200429
  8. IBRUTINIB [Suspect]
     Active Substance: IBRUTINIB
     Dosage: (5TH CYCLE)
     Route: 042
     Dates: start: 20200520
  9. BENDAMUSTINE HYDROCHLORIDE. [Suspect]
     Active Substance: BENDAMUSTINE HYDROCHLORIDE
     Indication: DIFFUSE LARGE B-CELL LYMPHOMA
     Dosage: (1ST CYCLE)
     Route: 042
     Dates: start: 20200116, end: 20200117
  10. DOXORUBICIN [Suspect]
     Active Substance: DOXORUBICIN
     Dosage: (2ND CYCLE)
     Route: 042
     Dates: start: 20200219, end: 20200220
  11. RITUXIMAB. [Suspect]
     Active Substance: RITUXIMAB
     Dosage: (3RD CYCLE)
     Route: 042
     Dates: start: 20200318
  12. POLATUZUMAB VEDOTIN. [Suspect]
     Active Substance: POLATUZUMAB VEDOTIN
     Dosage: (3RD CYCLE)
     Route: 042
     Dates: start: 20200318
  13. RITUXIMAB. [Suspect]
     Active Substance: RITUXIMAB
     Dosage: (5TH CYCLE)
     Route: 042
     Dates: start: 20200520
  14. POLATUZUMAB VEDOTIN. [Suspect]
     Active Substance: POLATUZUMAB VEDOTIN
     Dosage: (6TH CYCLE)
     Route: 042
     Dates: start: 20200624
  15. IBRUTINIB [Suspect]
     Active Substance: IBRUTINIB
     Indication: DIFFUSE LARGE B-CELL LYMPHOMA
     Dosage: (2 VIALS)
     Route: 042
     Dates: start: 20200116
  16. IBRUTINIB [Suspect]
     Active Substance: IBRUTINIB
     Dosage: (6TH CYCLE)
     Route: 042
     Dates: start: 20200624
  17. BACTRIMEL [Concomitant]
     Active Substance: SULFAMETHOXAZOLE\TRIMETHOPRIM
     Indication: PRODUCT USED FOR UNKNOWN INDICATION
     Dosage: TB (800+160MG) 1X2 EVERY MONDAY?WEDNESDAY?FRIDAY
     Route: 065
  18. METFORMIN [Concomitant]
     Active Substance: METFORMIN HYDROCHLORIDE
     Indication: TYPE 2 DIABETES MELLITUS
     Route: 065
  19. RITUXIMAB. [Suspect]
     Active Substance: RITUXIMAB
     Dosage: (3RD CYCLE)
     Route: 058
     Dates: start: 20200318
  20. POLATUZUMAB VEDOTIN. [Suspect]
     Active Substance: POLATUZUMAB VEDOTIN
     Dosage: (5TH CYCLE)
     Route: 042
     Dates: start: 20200520
  21. IBRUTINIB [Suspect]
     Active Substance: IBRUTINIB
     Dosage: (3RD CYCLE)
     Route: 042
     Dates: start: 20200318
  22. VINCRISTINE [Suspect]
     Active Substance: VINCRISTINE
     Dosage: (2ND CYCLE)
     Route: 042
     Dates: start: 20200219, end: 20200220
  23. RITUXIMAB. [Suspect]
     Active Substance: RITUXIMAB
     Indication: DIFFUSE LARGE B-CELL LYMPHOMA
     Dosage: (1ST CYCLE)
     Route: 042
     Dates: start: 20200115
  24. RITUXIMAB. [Suspect]
     Active Substance: RITUXIMAB
     Dosage: (4TH CYCLE)
     Route: 042
     Dates: start: 20200429
  25. RITUXIMAB. [Suspect]
     Active Substance: RITUXIMAB
     Dosage: (6TH CYCLE)
     Route: 042
     Dates: start: 20200624
  26. CYCLOPHOSPHAMIDE. [Suspect]
     Active Substance: CYCLOPHOSPHAMIDE
     Dosage: (2ND CYCLE)
     Route: 042
     Dates: start: 20200219, end: 20200220
  27. POLATUZUMAB VEDOTIN. [Suspect]
     Active Substance: POLATUZUMAB VEDOTIN
     Dosage: (2ND CYCLE)
     Route: 042
     Dates: start: 20200219
  28. BENDAMUSTINE HYDROCHLORIDE. [Suspect]
     Active Substance: BENDAMUSTINE HYDROCHLORIDE
     Dosage: (2ND CYCLE)
     Route: 042
     Dates: start: 20200219, end: 20200220
  29. RITUXIMAB. [Suspect]
     Active Substance: RITUXIMAB
     Dosage: (2ND CYCLE)
     Route: 042
     Dates: start: 20200219
  30. CYCLOPHOSPHAMIDE. [Suspect]
     Active Substance: CYCLOPHOSPHAMIDE
     Indication: MYELOSUPPRESSION
     Dosage: (1ST CYCLE)
     Route: 042
     Dates: start: 20200116, end: 20200117
  31. BENDAMUSTINE HYDROCHLORIDE. [Suspect]
     Active Substance: BENDAMUSTINE HYDROCHLORIDE
     Dosage: (5TH CYCLE)
     Route: 042
     Dates: start: 20200520
  32. DOXORUBICIN [Suspect]
     Active Substance: DOXORUBICIN
     Indication: MYELOSUPPRESSION
     Dosage: (1ST CYCLE)
     Route: 042
     Dates: start: 20200116, end: 20200117
  33. VINCRISTINE [Suspect]
     Active Substance: VINCRISTINE
     Indication: MYELOSUPPRESSION
     Dosage: (1ST CYCLE)
     Route: 042
     Dates: start: 20200116, end: 20200117
  34. RITUXIMAB. [Suspect]
     Active Substance: RITUXIMAB
     Dosage: (2ND CYCLE)
     Route: 058
     Dates: start: 20200219
  35. POLATUZUMAB VEDOTIN. [Suspect]
     Active Substance: POLATUZUMAB VEDOTIN
     Indication: DIFFUSE LARGE B-CELL LYMPHOMA
     Dosage: (2 VIALS, 1ST CYCLE)
     Route: 042
     Dates: start: 20200116

REACTIONS (4)
  - Leukopenia [Recovered/Resolved]
  - Neutropenia [Recovered/Resolved]
  - Thrombocytopenia [Recovered/Resolved]
  - Neutropenia [Recovered/Resolved]

NARRATIVE: CASE EVENT DATE: 20200212
